FAERS Safety Report 4652266-0 (Version None)
Quarter: 2005Q2

REPORT INFORMATION
  Report Type: 
  Country: None (occurrence: None)
  Receive Date: 20050502
  Receipt Date: 20050419
  Transmission Date: 20051028
  Serious: Yes (Other)
  Sender: FDA-Public Use
  Company Number: 200510791BWH

PATIENT
  Age: 49 Year
  Sex: Male
  Weight: 123.3784 kg

DRUGS (5)
  1. LEVITRA [Suspect]
     Indication: ERECTILE DYSFUNCTION
     Dosage: 20 MG, TOTAL DAILY, ORAL
     Route: 048
     Dates: start: 20050316
  2. TESTOSTERONE [Suspect]
     Indication: BLOOD TESTOSTERONE DECREASED
     Dosage: 100 MG, TOTAL DAILY, ORAL
     Route: 048
     Dates: start: 20050316, end: 20050317
  3. TESTOSTERONE [Suspect]
     Indication: ERECTILE DYSFUNCTION
     Dosage: 100 MG, TOTAL DAILY, ORAL
     Route: 048
     Dates: start: 20050316, end: 20050317
  4. TESTOSTERONE [Suspect]
     Indication: HYPOGONADISM
     Dosage: 100 MG, TOTAL DAILY, ORAL
     Route: 048
     Dates: start: 20050316, end: 20050317
  5. ANDROGEL [Suspect]
     Dosage: 20 MG, TOTAL DAILY
     Dates: start: 20050316

REACTIONS (5)
  - ANXIETY [None]
  - FLUSHING [None]
  - HEADACHE [None]
  - HYPERTENSION [None]
  - RASH ERYTHEMATOUS [None]
